FAERS Safety Report 12240621 (Version 1)
Quarter: 2016Q2

REPORT INFORMATION
  Report Type: Spontaneous
  Country: GB (occurrence: GB)
  Receive Date: 20160406
  Receipt Date: 20160406
  Transmission Date: 20160815
  Serious: Yes (Hospitalization)
  Sender: FDA-Public Use
  Company Number: GB-ROCHE-1736072

PATIENT
  Age: 58 Year
  Sex: Female

DRUGS (9)
  1. PREDNISOLONE. [Suspect]
     Active Substance: PREDNISOLONE
     Route: 065
  2. METHYLPREDNISOLONE. [Concomitant]
     Active Substance: METHYLPREDNISOLONE
     Route: 065
     Dates: start: 200505
  3. MYCOPHENOLATE MOFETIL. [Suspect]
     Active Substance: MYCOPHENOLATE MOFETIL
     Route: 048
  4. PREDNISOLONE. [Suspect]
     Active Substance: PREDNISOLONE
     Indication: ACQUIRED EPIDERMOLYSIS BULLOSA
     Route: 065
  5. CICLOSPORIN [Suspect]
     Active Substance: CYCLOSPORINE
     Indication: ACQUIRED EPIDERMOLYSIS BULLOSA
     Route: 065
  6. MYCOPHENOLATE MOFETIL. [Suspect]
     Active Substance: MYCOPHENOLATE MOFETIL
     Indication: ACQUIRED EPIDERMOLYSIS BULLOSA
     Route: 048
  7. PREDNISOLONE. [Suspect]
     Active Substance: PREDNISOLONE
     Route: 065
  8. AZATHIOPRINE. [Suspect]
     Active Substance: AZATHIOPRINE
     Indication: ACQUIRED EPIDERMOLYSIS BULLOSA
     Route: 065
  9. RITUXIMAB [Concomitant]
     Active Substance: RITUXIMAB
     Route: 042
     Dates: start: 200506

REACTIONS (11)
  - Cellulitis [Unknown]
  - Skin atrophy [Unknown]
  - Diabetes mellitus [Unknown]
  - Constipation [Unknown]
  - Hepatotoxicity [Unknown]
  - Nephropathy toxic [Unknown]
  - Deep vein thrombosis [Unknown]
  - Cataract [Unknown]
  - Cushingoid [Unknown]
  - Hypertension [Unknown]
  - Faecaloma [Unknown]
